FAERS Safety Report 4791604-5 (Version None)
Quarter: 2005Q4

REPORT INFORMATION
  Report Type: 
  Country: None (occurrence: None)
  Receive Date: 20051007
  Receipt Date: 20050608
  Transmission Date: 20060501
  Serious: No
  Sender: FDA-Public Use
  Company Number: US-BRISTOL-MYERS SQUIBB COMPANY-12998779

PATIENT

DRUGS (1)
  1. AVAPRO [Suspect]
     Dosage: PT TITRATED FROM 75 MG TO 300 MG.

REACTIONS (3)
  - DYSURIA [None]
  - RASH [None]
  - RAYNAUD'S PHENOMENON [None]
